FAERS Safety Report 8431566-2 (Version None)
Quarter: 2012Q2

REPORT INFORMATION
  Report Type: 
  Country: None (occurrence: None)
  Receive Date: 20120323
  Receipt Date: 20110720
  Transmission Date: 20120825
  Serious: Yes (Hospitalization)
  Sender: FDA-Public Use
  Company Number: 163-21880-11062804

PATIENT
  Age: 75 Year
  Sex: Female
  Weight: 72.5755 kg

DRUGS (27)
  1. METOPROLOL TARTRATE [Suspect]
     Indication: PRODUCT USED FOR UNKNOWN INDICATION
     Dosage: 100 MG, BID, UNK; 50 MG, QD, UNK
     Dates: end: 20110601
  2. METOPROLOL TARTRATE [Suspect]
     Indication: PRODUCT USED FOR UNKNOWN INDICATION
     Dosage: 100 MG, BID, UNK; 50 MG, QD, UNK
     Dates: start: 20110601
  3. DECADRON [Concomitant]
  4. FENTANYL [Concomitant]
  5. PROTONIX [Concomitant]
  6. ZOCOR [Concomitant]
  7. ASPIRIN [Concomitant]
  8. SYNTHROID [Concomitant]
  9. PLASMA [Concomitant]
  10. REVLIMID [Suspect]
     Indication: MULTIPLE MYELOMA
     Dosage: 5 MG, 1 IN 1 D, PO
     Route: 048
     Dates: start: 20080807
  11. VITAMIN B12 (CYANOCOBALAMIN) (UNKNOWN) [Concomitant]
  12. ZANTAC [Concomitant]
  13. VICODIN [Concomitant]
  14. VITAMIN D [Concomitant]
  15. FLEXERIL [Concomitant]
  16. LASIX [Suspect]
     Indication: PRODUCT USED FOR UNKNOWN INDICATION
     Dosage: 40 MG, UNK
  17. NEUPOGEN [Concomitant]
  18. TOPROL-XL [Concomitant]
  19. ALLOPURINOL [Concomitant]
  20. OS-CAL (OS-CAL) [Concomitant]
  21. POTASSIUM CHLORIDE [Concomitant]
  22. DAPSONE [Concomitant]
  23. EXJADE [Concomitant]
  24. CYTOMEL (LIOTHYROXINE SODIUM) [Concomitant]
  25. CRESTOR [Concomitant]
  26. RESTORIL [Concomitant]
  27. ISRADIPINE [Concomitant]

REACTIONS (3)
  - EPISTAXIS [None]
  - ANAEMIA [None]
  - HYPOTENSION [None]
